FAERS Safety Report 7985060-3 (Version None)
Quarter: 2011Q4

REPORT INFORMATION
  Report Type: 
  Country: None (occurrence: None)
  Receive Date: 20111216
  Receipt Date: 20111129
  Transmission Date: 20120403
  Serious: No
  Sender: FDA-Public Use
  Company Number: US-ALLERGAN-1115539US

PATIENT
  Age: 40 Year
  Sex: Female

DRUGS (2)
  1. LATISSE [Suspect]
     Indication: HYPOTRICHOSIS
     Dosage: 1 GTT, QPM
     Route: 061
     Dates: start: 20111127
  2. LATISSE [Suspect]
     Dosage: UNK
     Dates: start: 20090101, end: 20110101

REACTIONS (1)
  - MADAROSIS [None]
